FAERS Safety Report 12325008 (Version 1)
Quarter: 2016Q2

REPORT INFORMATION
  Report Type: Spontaneous
  Country: KR (occurrence: KR)
  Receive Date: 20160502
  Receipt Date: 20160502
  Transmission Date: 20160815
  Serious: Yes (Other)
  Sender: FDA-Public Use
  Company Number: KR-HQ SPECIALTY-KR-2016INT000239

PATIENT
  Age: 16 Year
  Sex: Female

DRUGS (3)
  1. BLEOMYCIN [Suspect]
     Active Substance: BLEOMYCIN SULFATE
     Indication: YOLK SAC TUMOUR SITE UNSPECIFIED
     Dosage: UNK
  2. ETOPOSIDE. [Suspect]
     Active Substance: ETOPOSIDE
     Indication: YOLK SAC TUMOUR SITE UNSPECIFIED
     Dosage: UNK
  3. CISPLATIN. [Suspect]
     Active Substance: CISPLATIN
     Indication: YOLK SAC TUMOUR SITE UNSPECIFIED
     Dosage: UNK

REACTIONS (1)
  - Ovarian germ cell teratoma [Recovered/Resolved]
